FAERS Safety Report 4950240-8 (Version None)
Quarter: 2006Q1

REPORT INFORMATION
  Report Type: 
  Country: None (occurrence: None)
  Receive Date: 20060316
  Receipt Date: 20060303
  Transmission Date: 20060701
  Serious: Yes (Hospitalization)
  Sender: FDA-Public Use
  Company Number: 2006032598

PATIENT
  Age: 72 Year
  Sex: Female

DRUGS (1)
  1. UNASYN [Suspect]
     Indication: ANTIBIOTIC PROPHYLAXIS
     Dosage: 1 GRAM (1 GRAM), INTRAVENOUS
     Route: 042
     Dates: start: 20060224, end: 20060224

REACTIONS (3)
  - GENERALISED ERYTHEMA [None]
  - HYPERPYREXIA [None]
  - LEUKOCYTOSIS [None]
